FAERS Safety Report 20854854 (Version 1)
Quarter: 2022Q2

REPORT INFORMATION
  Report Type: Spontaneous
  Country: US (occurrence: US)
  Receive Date: 20220520
  Receipt Date: 20220520
  Transmission Date: 20220721
  Serious: Yes (Hospitalization, Other)
  Sender: FDA-Public Use
  Company Number: US-BAYER-2022A068685

PATIENT
  Age: 26 Year
  Sex: Male

DRUGS (1)
  1. CORICIDIN HBP COLD AND FLU [Suspect]
     Active Substance: ACETAMINOPHEN\CHLORPHENIRAMINE MALEATE
     Dates: start: 202001

REACTIONS (5)
  - Hallucination [Recovered/Resolved with Sequelae]
  - Intentional product use issue [None]
  - Tinnitus [None]
  - Cognitive disorder [None]
  - Insomnia [None]
